FAERS Safety Report 7701319-9 (Version None)
Quarter: 2011Q3

REPORT INFORMATION
  Report Type: 
  Country: None (occurrence: None)
  Receive Date: 20110822
  Receipt Date: 20110816
  Transmission Date: 20111222
  Serious: Yes (Other)
  Sender: FDA-Public Use
  Company Number: US-JNJFOC-20110808434

PATIENT
  Sex: Male
  Weight: 108.86 kg

DRUGS (2)
  1. STEROIDS NOS [Concomitant]
     Indication: ARTHRALGIA
     Route: 008
  2. NUCYNTA [Suspect]
     Indication: ARTHRALGIA
     Route: 048
     Dates: start: 20110301

REACTIONS (2)
  - DYSURIA [None]
  - RESPIRATORY DISTRESS [None]
